FAERS Safety Report 4447122-7 (Version None)
Quarter: 2004Q3

REPORT INFORMATION
  Report Type: 
  Country: None (occurrence: None)
  Receive Date: 20040813
  Receipt Date: 20040602
  Transmission Date: 20050211
  Serious: No
  Sender: FDA-Public Use
  Company Number: S04-USA-03627-01

PATIENT
  Age: 79 Year
  Sex: Female

DRUGS (7)
  1. NAMENDA [Suspect]
     Indication: DEMENTIA
     Dosage: 20 MG QD PO
     Route: 048
     Dates: start: 20040531
  2. NAMENDA [Suspect]
     Indication: DEMENTIA
     Dosage: 5 MG QD PO
     Route: 048
     Dates: start: 20040510, end: 20040516
  3. NAMENDA [Suspect]
     Indication: DEMENTIA
     Dosage: 10 MG QD PO
     Route: 048
     Dates: start: 20040517, end: 20040523
  4. NAMENDA [Suspect]
     Indication: DEMENTIA
     Dosage: 15 MG QD PO
     Route: 048
     Dates: start: 20040524, end: 20040530
  5. ARICEPT [Concomitant]
  6. SYNTHROID [Concomitant]
  7. CELEBREX [Concomitant]

REACTIONS (1)
  - RASH MACULAR [None]
